FAERS Safety Report 25920745 (Version 1)
Quarter: 2025Q4

REPORT INFORMATION
  Report Type: Spontaneous
  Country: CN (occurrence: CN)
  Receive Date: 20251014
  Receipt Date: 20251014
  Transmission Date: 20260117
  Serious: Yes (Hospitalization)
  Sender: PFIZER
  Company Number: CN-PFIZER INC-PV202500121535

PATIENT
  Age: 11 Year
  Sex: Male
  Weight: 36 kg

DRUGS (5)
  1. VFEND [Suspect]
     Active Substance: VORICONAZOLE
     Indication: Penicillium infection
     Dosage: UNK
     Dates: start: 20250708, end: 20250708
  2. VFEND [Suspect]
     Active Substance: VORICONAZOLE
     Dosage: 315 MG, 2X/DAY
     Route: 041
     Dates: start: 20250807, end: 20250830
  3. VORICONAZOLE [Suspect]
     Active Substance: VORICONAZOLE
     Indication: Penicillium infection
     Dosage: UNK
     Route: 048
     Dates: start: 202507
  4. LINEZOLID [Concomitant]
     Active Substance: LINEZOLID
     Indication: Neutropenia
     Dosage: 360 MG, 3X/DAY
     Route: 041
     Dates: start: 20250819, end: 20250912
  5. MEROPENEM [Concomitant]
     Active Substance: MEROPENEM
     Indication: Neutropenia
     Dosage: 0.72 G, 3X/DAY
     Route: 041
     Dates: start: 20250824, end: 20250911

REACTIONS (2)
  - Neutropenia [Recovered/Resolved]
  - White blood cell count decreased [Recovered/Resolved]

NARRATIVE: CASE EVENT DATE: 20250807
